FAERS Safety Report 6064352-1 (Version None)
Quarter: 2009Q1

REPORT INFORMATION
  Report Type: 
  Country: None (occurrence: None)
  Receive Date: 20090130
  Receipt Date: 20090116
  Transmission Date: 20090719
  Serious: Yes (Death)
  Sender: FDA-Public Use
  Company Number: 2009S1000043

PATIENT
  Age: 55 Year
  Sex: Male

DRUGS (4)
  1. METHADONE HCL [Suspect]
     Dates: end: 20070101
  2. TRAMADOL HCL [Suspect]
     Dates: end: 20070101
  3. SERTRALINE [Suspect]
     Dates: end: 20070101
  4. DIAZEPAM [Suspect]
     Dates: end: 20070101

REACTIONS (11)
  - ARTERIOSCLEROSIS CORONARY ARTERY [None]
  - CARDIAC ARREST [None]
  - CARDIOMEGALY [None]
  - COMPLETED SUICIDE [None]
  - DRUG INEFFECTIVE [None]
  - DRUG TOXICITY [None]
  - OEDEMA [None]
  - PULMONARY CONGESTION [None]
  - RESPIRATORY ARREST [None]
  - UNRESPONSIVE TO STIMULI [None]
  - VENTRICULAR HYPERTROPHY [None]
